FAERS Safety Report 12902938 (Version 1)
Quarter: 2016Q4

REPORT INFORMATION
  Report Type: Spontaneous
  Country: US (occurrence: US)
  Receive Date: 20161102
  Receipt Date: 20161102
  Transmission Date: 20170207
  Serious: No
  Sender: FDA-Public Use
  Company Number: US-JNJFOC-20160925002

PATIENT
  Age: 73 Year
  Sex: Female
  Weight: 43.09 kg

DRUGS (2)
  1. IMODIUM MULTI-SYMPTOM RELIEF [Suspect]
     Active Substance: DIMETHICONE\LOPERAMIDE HYDROCHLORIDE
     Route: 048
  2. IMODIUM MULTI-SYMPTOM RELIEF [Suspect]
     Active Substance: DIMETHICONE\LOPERAMIDE HYDROCHLORIDE
     Indication: IRRITABLE BOWEL SYNDROME
     Dosage: DOSE: CAPLET
     Route: 048
     Dates: start: 20160923, end: 20160923

REACTIONS (5)
  - Foreign body [Recovered/Resolved]
  - Product use issue [Unknown]
  - Product solubility abnormal [Unknown]
  - Product formulation issue [Unknown]
  - Off label use [Unknown]

NARRATIVE: CASE EVENT DATE: 20160923
